FAERS Safety Report 4278894-2 (Version None)
Quarter: 2004Q1

REPORT INFORMATION
  Report Type: 
  Country: None (occurrence: None)
  Receive Date: 20040122
  Receipt Date: 20040112
  Transmission Date: 20041129
  Serious: No
  Sender: FDA-Public Use
  Company Number: 04P-163-0246933-00

PATIENT
  Age: 53 Year
  Sex: Female

DRUGS (4)
  1. HUMIRA [Suspect]
     Indication: RHEUMATOID ARTHRITIS
     Dosage: 40 MG, 1 IN 2WK, SUBCUTANEOUS
     Route: 058
     Dates: start: 20031001, end: 20031201
  2. ROFECOXIB [Concomitant]
  3. FISH OIL [Concomitant]
  4. CALCIUM [Concomitant]

REACTIONS (5)
  - ANAPHYLACTIC REACTION [None]
  - ASTHMA [None]
  - BRONCHOSPASM [None]
  - THROAT TIGHTNESS [None]
  - URTICARIA [None]
